FAERS Safety Report 5639843-5 (Version None)
Quarter: 2008Q1

REPORT INFORMATION
  Report Type: 
  Country: None (occurrence: None)
  Receive Date: 20080226
  Receipt Date: 20080226
  Transmission Date: 20080703
  Serious: No
  Sender: FDA-Public Use
  Company Number: None

PATIENT
  Age: 68 Year
  Sex: Female
  Weight: 72.5755 kg

DRUGS (1)
  1. ACTONEL [Suspect]
     Indication: OSTEOPENIA
     Dosage: ONCE A WEEK PO
     Route: 048

REACTIONS (4)
  - JAW DISORDER [None]
  - NERVOUSNESS [None]
  - PAIN [None]
  - TOOTH DISORDER [None]
